FAERS Safety Report 4898478-2 (Version None)
Quarter: 2006Q1

REPORT INFORMATION
  Report Type: 
  Country: None (occurrence: None)
  Receive Date: 20060127
  Receipt Date: 20060117
  Transmission Date: 20060701
  Serious: Yes (Death, Other)
  Sender: FDA-Public Use
  Company Number: USA0508106878

PATIENT
  Age: 36 Year
  Sex: Male

DRUGS (2)
  1. ZYPREXA [Suspect]
     Indication: SCHIZOAFFECTIVE DISORDER
     Dosage: 20 MG, ORAL
     Route: 048
     Dates: start: 20030317, end: 20030801
  2. ZYPREXA [Suspect]
     Indication: SCHIZOAFFECTIVE DISORDER
     Dosage: 20 MG, ORAL
     Route: 048
     Dates: start: 20050210

REACTIONS (3)
  - BLOOD GLUCOSE INCREASED [None]
  - VOMITING [None]
  - WEIGHT INCREASED [None]
